FAERS Safety Report 14923969 (Version 17)
Quarter: 2018Q4

REPORT INFORMATION
  Report Type: Report from Study
  Country: FR (occurrence: FR)
  Receive Date: 20180522
  Receipt Date: 20181023
  Transmission Date: 20190204
  Serious: Yes (Hospitalization, Other)
  Sender: FDA-Public Use
  Company Number: FR-ACTELION-A-CH2018-170446

PATIENT
  Age: 64 Year
  Sex: Female
  Weight: 53 kg

DRUGS (10)
  1. UPTRAVI [Suspect]
     Active Substance: SELEXIPAG
     Dosage: 600 ?G, BID
     Route: 048
     Dates: start: 20180517
  2. BOSENTAN. [Concomitant]
     Active Substance: BOSENTAN
     Indication: PULMONARY ARTERIAL HYPERTENSION
  3. UPTRAVI [Suspect]
     Active Substance: SELEXIPAG
     Dosage: 400 ?G, BID
     Route: 048
     Dates: start: 20180327
  4. ACTISOUFRE [Concomitant]
  5. UPTRAVI [Suspect]
     Active Substance: SELEXIPAG
     Dosage: 600 ?G, BID
     Route: 048
     Dates: start: 20180919
  6. TADALAFIL. [Concomitant]
     Active Substance: TADALAFIL
     Indication: PULMONARY ARTERIAL HYPERTENSION
  7. UPTRAVI [Suspect]
     Active Substance: SELEXIPAG
     Dosage: 800 ?G, BID
     Route: 048
     Dates: start: 20180501
  8. UPTRAVI [Suspect]
     Active Substance: SELEXIPAG
     Indication: PULMONARY ARTERIAL HYPERTENSION
     Dosage: 200 ?G, BID
     Route: 048
     Dates: start: 20180320
  9. UPTRAVI [Suspect]
     Active Substance: SELEXIPAG
     Dosage: 600 ?G, BID
     Route: 048
     Dates: start: 20180403
  10. UPTRAVI [Suspect]
     Active Substance: SELEXIPAG
     Dosage: 800 ?G, BID
     Route: 048
     Dates: start: 20180823

REACTIONS (41)
  - Hyperhidrosis [Recovered/Resolved]
  - Palpitations [Not Recovered/Not Resolved]
  - Muscular weakness [Recovered/Resolved]
  - Head discomfort [Recovered/Resolved]
  - Fall [Recovered/Resolved]
  - Oropharyngeal pain [Recovered/Resolved]
  - Sputum abnormal [Not Recovered/Not Resolved]
  - Dyspepsia [Recovered/Resolved]
  - Middle insomnia [Recovered/Resolved]
  - Feeling abnormal [Recovered/Resolved]
  - Bedridden [Recovered/Resolved]
  - Pain in jaw [Recovered/Resolved]
  - Productive cough [Recovering/Resolving]
  - Abdominal pain [Recovered/Resolved]
  - Abdominal discomfort [Recovered/Resolved]
  - Myalgia [Not Recovered/Not Resolved]
  - Abdominal pain upper [Not Recovered/Not Resolved]
  - Dyspnoea exertional [Recovered/Resolved]
  - Cough [Not Recovered/Not Resolved]
  - Nausea [Recovered/Resolved]
  - Constipation [Recovered/Resolved]
  - Rhinorrhoea [Recovered/Resolved]
  - Pyrexia [Recovered/Resolved]
  - Chills [Recovered/Resolved]
  - Rectal tenesmus [Recovered/Resolved]
  - Chest pain [Recovered/Resolved]
  - Throat irritation [Recovered/Resolved]
  - Fatigue [Not Recovered/Not Resolved]
  - Headache [Not Recovered/Not Resolved]
  - Flushing [Not Recovered/Not Resolved]
  - Dizziness [Recovered/Resolved]
  - Dyspnoea [Unknown]
  - Drug ineffective [Not Recovered/Not Resolved]
  - Disease progression [Not Recovered/Not Resolved]
  - Suffocation feeling [Recovered/Resolved]
  - Abdominal distension [Recovered/Resolved]
  - Sleep disorder [Not Recovered/Not Resolved]
  - Pain in extremity [Recovered/Resolved]
  - Extrasystoles [Recovered/Resolved]
  - Angina pectoris [Recovered/Resolved]
  - Haemoptysis [Recovered/Resolved]

NARRATIVE: CASE EVENT DATE: 20180320
